FAERS Safety Report 11820031 (Version 3)
Quarter: 2016Q1

REPORT INFORMATION
  Report Type: Spontaneous
  Country: AU (occurrence: AU)
  Receive Date: 20151210
  Receipt Date: 20160202
  Transmission Date: 20160525
  Serious: Yes (Hospitalization)
  Sender: FDA-Public Use
  Company Number: AU-HOSPIRA-3098773

PATIENT
  Age: 84 Year
  Sex: Male
  Weight: 77.8 kg

DRUGS (26)
  1. BEVACIZUMAB [Suspect]
     Active Substance: BEVACIZUMAB
     Indication: COLORECTAL CANCER
     Dosage: DAY 1 OF 14 DAY CYCLE
     Route: 042
     Dates: start: 20150813, end: 20151014
  2. PALONOSETRON [Concomitant]
     Active Substance: PALONOSETRON
     Indication: ANTIEMETIC SUPPORTIVE CARE
     Dosage: DAY 1 OF EACH CHEMO CYCLE
     Route: 040
     Dates: start: 20150813, end: 20151014
  3. MICROLAX                           /00285401/ [Concomitant]
     Indication: CONSTIPATION
     Route: 054
     Dates: start: 20150815, end: 20150815
  4. CRESTOR [Concomitant]
     Active Substance: ROSUVASTATIN CALCIUM
     Indication: HYPERCHOLESTEROLAEMIA
     Dosage: 10 MG
     Route: 048
     Dates: start: 2010, end: 20151028
  5. VELIPARIB [Suspect]
     Active Substance: VELIPARIB
     Indication: COLORECTAL CANCER
     Dosage: DAYS (-)2 THROUGH 5 OF 14 DAY CYCLE
     Route: 048
     Dates: start: 20150811, end: 20151027
  6. IRINOTECAN HYDROCHLORIDE. [Suspect]
     Active Substance: IRINOTECAN HYDROCHLORIDE
     Indication: COLORECTAL CANCER
     Dosage: DAY 1 OF EACH 14 DAY CYCLE
     Route: 042
     Dates: start: 20150813, end: 20150813
  7. MICARDIS [Concomitant]
     Active Substance: TELMISARTAN
     Indication: HYPERTENSION
     Dosage: 80 MG
     Route: 048
     Dates: start: 201211
  8. COLOXYL WITH SENNA [Concomitant]
     Active Substance: DOCUSATE\SENNOSIDES
     Indication: CONSTIPATION
     Dosage: 4 TABLETS
     Route: 048
     Dates: start: 201504, end: 20151028
  9. LEUCOVORIN                         /00566701/ [Concomitant]
     Active Substance: LEUCOVORIN
     Indication: COLORECTAL CANCER
     Dosage: DAY 1 OF EACH 14 DAY CYCLE
     Route: 042
     Dates: start: 20150813, end: 20151014
  10. ATROPINE. [Concomitant]
     Active Substance: ATROPINE
     Indication: PROPHYLAXIS
     Dosage: EACH DAY 1 PRE-CHEMO
     Route: 058
     Dates: start: 20150813, end: 20151014
  11. PALONOSETRON [Concomitant]
     Active Substance: PALONOSETRON
     Indication: PREMEDICATION
     Dosage: DAY 1 OF EACH CHEMO CYCLE
     Route: 040
     Dates: start: 20150813, end: 20151014
  12. FLUOROURACIL. [Suspect]
     Active Substance: FLUOROURACIL
     Indication: COLORECTAL CANCER
     Dosage: OVER 15 MIN; DAY 1 OF EACH 14 DAY CYCLE
     Route: 040
     Dates: start: 20150813, end: 20150813
  13. FLUOROURACIL. [Suspect]
     Active Substance: FLUOROURACIL
     Indication: COLORECTAL CANCER
     Dosage: OVER 46 HOURS; DAY 1 OF EACH 14 DAY CYCLE
     Route: 042
     Dates: start: 20150903, end: 20151027
  14. ATROPINE. [Concomitant]
     Active Substance: ATROPINE
     Indication: ADVERSE DRUG REACTION
     Dosage: EACH DAY 1 PRE-CHEMO
     Route: 058
     Dates: start: 20150813, end: 20151014
  15. NORVASC [Concomitant]
     Active Substance: AMLODIPINE BESYLATE
     Indication: HYPERTENSION
     Dosage: 5 MG
     Route: 048
     Dates: start: 20150910, end: 20150913
  16. PALONOSETRON [Concomitant]
     Active Substance: PALONOSETRON
     Indication: CHEMOTHERAPY
     Dosage: DAY 1 OF EACH CHEMO CYCLE
     Route: 040
     Dates: start: 20150813, end: 20151014
  17. IRINOTECAN HYDROCHLORIDE. [Suspect]
     Active Substance: IRINOTECAN HYDROCHLORIDE
     Indication: COLORECTAL CANCER
     Dosage: DAY 1 OF EACH 14 DAY CYCLE
     Route: 042
     Dates: start: 20150903, end: 20151014
  18. DEXAMETHASONE. [Concomitant]
     Active Substance: DEXAMETHASONE
     Indication: CHEMOTHERAPY
     Dosage: DAY 1 PRE-CHEMO
     Route: 041
     Dates: start: 20150813, end: 20151014
  19. SEREPAX [Concomitant]
     Active Substance: OXAZEPAM
     Indication: SLEEP DISORDER THERAPY
     Route: 048
     Dates: start: 201508
  20. NORVASC [Concomitant]
     Active Substance: AMLODIPINE BESYLATE
     Indication: HYPERTENSION
     Dosage: 10 MG
     Route: 048
     Dates: start: 2007, end: 20150909
  21. PRAMIN                             /00041902/ [Concomitant]
     Indication: NAUSEA
     Route: 048
     Dates: start: 20150815, end: 201510
  22. SOMAC [Concomitant]
     Active Substance: PANTOPRAZOLE SODIUM
     Indication: GASTROOESOPHAGEAL REFLUX DISEASE
     Dosage: 20 MG
     Route: 048
     Dates: start: 2013, end: 20151028
  23. GASTROSTOP [Concomitant]
     Indication: DIARRHOEA
     Route: 048
     Dates: start: 20150817, end: 201508
  24. FLUOROURACIL. [Suspect]
     Active Substance: FLUOROURACIL
     Indication: COLORECTAL CANCER
     Dosage: OVER 46 HOURS; DAY 1 OF EACH 14 DAY CYCLE
     Route: 042
     Dates: start: 20150813, end: 20150815
  25. PANADOL [Concomitant]
     Active Substance: ACETAMINOPHEN
     Indication: ABDOMINAL PAIN
     Route: 048
     Dates: start: 201507
  26. DEXAMETHASONE. [Concomitant]
     Active Substance: DEXAMETHASONE
     Indication: PREMEDICATION
     Dosage: DAY 1 PRE-CHEMO
     Route: 041
     Dates: start: 20150813, end: 20151014

REACTIONS (18)
  - Mitral valve incompetence [Unknown]
  - Troponin increased [Unknown]
  - Lethargy [Unknown]
  - Pulmonary hypertension [Unknown]
  - Aortic valve incompetence [Unknown]
  - Atelectasis [Unknown]
  - Coronary artery disease [Unknown]
  - Condition aggravated [Unknown]
  - Pleural effusion [Unknown]
  - Hypothermia [Unknown]
  - Dilatation ventricular [Unknown]
  - Aortic dilatation [Unknown]
  - Tricuspid valve incompetence [Unknown]
  - Left ventricular failure [Unknown]
  - Pulmonary oedema [Unknown]
  - Systolic dysfunction [Unknown]
  - Dilatation atrial [Unknown]
  - Suffocation feeling [Unknown]

NARRATIVE: CASE EVENT DATE: 20150821
